FAERS Safety Report 8403113-2 (Version None)
Quarter: 2012Q2

REPORT INFORMATION
  Report Type: 
  Country: None (occurrence: None)
  Receive Date: 20120601
  Receipt Date: 20120525
  Transmission Date: 20120825
  Serious: Yes (Hospitalization)
  Sender: FDA-Public Use
  Company Number: AU-JNJFOC-20120106653

PATIENT
  Sex: Male
  Weight: 92 kg

DRUGS (17)
  1. PREDNISOLONE [Suspect]
     Indication: PROSTATE CANCER METASTATIC
     Route: 048
     Dates: start: 20111118
  2. PANTOPRAZOLE [Concomitant]
     Indication: GASTROINTESTINAL DISORDER THERAPY
     Route: 065
     Dates: start: 20100101
  3. ABIRATERONE ACETATE [Suspect]
     Route: 048
  4. MULTI-VITAMINS [Concomitant]
     Indication: MEDICAL DIET
     Route: 065
     Dates: start: 20110101
  5. ZOMETA [Concomitant]
     Indication: METASTASES TO BONE
     Route: 065
     Dates: start: 20090101
  6. COLOXYL AND SENNA [Concomitant]
     Indication: CONSTIPATION PROPHYLAXIS
     Route: 065
     Dates: start: 20111120
  7. OXYCONTIN [Concomitant]
     Route: 065
     Dates: start: 20111024, end: 20111219
  8. OXYCONTIN [Concomitant]
     Indication: PAIN MANAGEMENT
     Route: 065
     Dates: start: 20120116
  9. OXYCONTIN [Concomitant]
     Route: 065
     Dates: start: 20111219, end: 20120116
  10. IRON PLUS [Concomitant]
     Indication: ANAEMIA
     Route: 065
     Dates: start: 20110101
  11. LEUPROLIDE ACETATE [Concomitant]
     Indication: HORMONE THERAPY
     Route: 065
     Dates: start: 20010131
  12. VENLAFAXINE [Concomitant]
     Indication: DEPRESSION
     Route: 065
     Dates: start: 20110816
  13. ABIRATERONE ACETATE [Suspect]
     Indication: PROSTATE CANCER METASTATIC
     Dosage: 250 MG
     Route: 048
     Dates: start: 20111118, end: 20120115
  14. ACETAMINOPHEN [Concomitant]
     Indication: PAIN
     Route: 065
     Dates: start: 20090101
  15. OXYCONTIN [Concomitant]
     Route: 065
     Dates: start: 20100101
  16. OXYCODONE HYDROCHLORIDE [Concomitant]
     Indication: PAIN MANAGEMENT
     Route: 065
     Dates: start: 20100101
  17. OXYCODONE HYDROCHLORIDE [Concomitant]
     Route: 065
     Dates: start: 20120116

REACTIONS (1)
  - ARTHRALGIA [None]
